FAERS Safety Report 8883717 (Version 1)
Quarter: 2012Q4

REPORT INFORMATION
  Report Type: 
  Country: US (occurrence: US)
  Receive Date: 20121102
  Receipt Date: 20121102
  Transmission Date: 20130627
  Serious: No
  Sender: FDA-Public Use
  Company Number: US-GLAXOSMITHKLINE-A0994952A

PATIENT

DRUGS (1)
  1. HORIZANT [Suspect]
     Indication: RESTLESS LEGS SYNDROME
     Route: 048

REACTIONS (1)
  - Therapeutic response decreased [Unknown]
